FAERS Safety Report 15499967 (Version 1)
Quarter: 2018Q4

REPORT INFORMATION
  Report Type: Spontaneous
  Country: CN (occurrence: CN)
  Receive Date: 20181015
  Receipt Date: 20181015
  Transmission Date: 20190205
  Serious: Yes (Other)
  Sender: FDA-Public Use
  Company Number: CN-PFIZER INC-2018406742

PATIENT
  Age: 82 Year
  Sex: Female
  Weight: 67 kg

DRUGS (4)
  1. MEDROL [Suspect]
     Active Substance: METHYLPREDNISOLONE
     Indication: NEPHROTIC SYNDROME
     Dosage: 24 MG, 1X/DAY
     Route: 048
     Dates: start: 20180606, end: 20180622
  2. SOLU-MEDROL [Suspect]
     Active Substance: METHYLPREDNISOLONE SODIUM SUCCINATE
     Indication: NEPHROTIC SYNDROME
     Dosage: 24 MG, 1X/DAY
     Route: 041
     Dates: start: 20180622, end: 20180628
  3. BAYASPIRIN [Concomitant]
     Active Substance: ASPIRIN
     Indication: ANTIPLATELET THERAPY
     Dosage: 100 MG, 1X/DAY
     Route: 048
     Dates: start: 20180604, end: 20180614
  4. CLEXANE [Concomitant]
     Active Substance: ENOXAPARIN SODIUM
     Indication: ANTICOAGULANT THERAPY
     Dosage: 0.4 ML, 1X/DAY
     Route: 058
     Dates: start: 20180604, end: 20180622

REACTIONS (4)
  - Occult blood positive [Recovering/Resolving]
  - Gastric occult blood positive [Recovering/Resolving]
  - Gastric haemorrhage [Recovering/Resolving]
  - Melaena [Recovering/Resolving]

NARRATIVE: CASE EVENT DATE: 20180622
